FAERS Safety Report 5574154-8 (Version None)
Quarter: 2007Q4

REPORT INFORMATION
  Report Type: 
  Country: None (occurrence: None)
  Receive Date: 20071221
  Receipt Date: 20071211
  Transmission Date: 20080405
  Serious: Yes (Death)
  Sender: FDA-Public Use
  Company Number: S06-USA-03868-01

PATIENT
  Age: 20 Year
  Sex: Male

DRUGS (6)
  1. LEXAPRO [Suspect]
     Indication: DEPRESSION
     Dates: start: 20060801, end: 20060901
  2. ZOLOFT [Suspect]
  3. METHADONE HCL [Suspect]
  4. AMBIEN [Concomitant]
  5. ANTIDEPRESSANT (NOS) [Concomitant]
  6. COLD MEDICINE (NOS) [Concomitant]

REACTIONS (13)
  - ABDOMINAL PAIN UPPER [None]
  - ACCIDENTAL DEATH [None]
  - ANALGESIC DRUG LEVEL INCREASED [None]
  - ANTIDEPRESSANT DRUG LEVEL INCREASED [None]
  - ARRHYTHMIA [None]
  - CARDIAC ARREST [None]
  - CONTUSION [None]
  - DRUG INTERACTION [None]
  - HEART RATE INCREASED [None]
  - INSOMNIA [None]
  - NERVOUS SYSTEM DISORDER [None]
  - UNRESPONSIVE TO STIMULI [None]
  - WEIGHT DECREASED [None]
